FAERS Safety Report 5243671-2 (Version None)
Quarter: 2007Q1

REPORT INFORMATION
  Report Type: 
  Country: None (occurrence: None)
  Receive Date: 20070222
  Receipt Date: 20070214
  Transmission Date: 20070707
  Serious: Yes (Other)
  Sender: FDA-Public Use
  Company Number: DE-JNJFOC-20070204100

PATIENT

DRUGS (1)
  1. INFLIXIMAB [Suspect]
     Indication: INFLAMMATION
     Dosage: 11TH INFUSION
     Route: 042

REACTIONS (2)
  - CARDIOVASCULAR INSUFFICIENCY [None]
  - INFUSION RELATED REACTION [None]
